FAERS Safety Report 15604087 (Version 3)
Quarter: 2019Q2

REPORT INFORMATION
  Report Type: Report from Study
  Country: None (occurrence: US)
  Receive Date: 20181109
  Receipt Date: 20190418
  Transmission Date: 20190711
  Serious: Yes (Hospitalization)
  Sender: FDA-Public Use
  Company Number: US-ABBVIE-18S-163-2547688-00

PATIENT
  Age: 44 Year
  Sex: Male

DRUGS (1)
  1. DEPAKOTE ER [Suspect]
     Active Substance: DIVALPROEX SODIUM
     Indication: SEIZURE
     Dosage: 2 TABLETS TWICE A DAY
     Route: 048

REACTIONS (2)
  - Musculoskeletal pain [Unknown]
  - Seizure [Unknown]

NARRATIVE: CASE EVENT DATE: 2017
